FAERS Safety Report 4503692-1 (Version None)
Quarter: 2004Q4

REPORT INFORMATION
  Report Type: 
  Country: None (occurrence: None)
  Receive Date: 20041112
  Receipt Date: 20041102
  Transmission Date: 20050328
  Serious: Yes (Other)
  Sender: FDA-Public Use
  Company Number: 2004243357DE

PATIENT
  Sex: Male

DRUGS (5)
  1. CABERGOLINE [Suspect]
     Indication: PARKINSON'S DISEASE
     Dosage: ORAL
     Route: 048
  2. SIFROL [Concomitant]
  3. MADOPAR             (BENSERAZIDE HYDROCHLORIDE) [Concomitant]
  4. AMANTADINE HCL [Concomitant]
  5. AKRINOR              (THEODRENALINE HYDROCHLORIDE, CAFEDRINE HYDROCHLO [Concomitant]

REACTIONS (2)
  - RETINAL DETACHMENT [None]
  - VISUAL DISTURBANCE [None]
